FAERS Safety Report 18031426 (Version 1)
Quarter: 2020Q3

REPORT INFORMATION
  Report Type: Report from Study
  Country: CA (occurrence: CA)
  Receive Date: 20200716
  Receipt Date: 20200716
  Transmission Date: 20201103
  Serious: Yes (Other)
  Sender: FDA-Public Use
  Company Number: CA-ACCORD-190441

PATIENT
  Age: 68 Year
  Sex: Female

DRUGS (8)
  1. CLOBETASOL [Concomitant]
     Active Substance: CLOBETASOL
     Route: 065
  2. STELARA [Concomitant]
     Active Substance: USTEKINUMAB
     Dosage: SOLUTION SUBCUTANEOUS
     Route: 065
  3. CICLOSPORIN [Suspect]
     Active Substance: CYCLOSPORINE
     Indication: PSORIASIS
     Route: 065
  4. BETAMETHASONE. [Concomitant]
     Active Substance: BETAMETHASONE
     Route: 065
  5. COSENTYX [Suspect]
     Active Substance: SECUKINUMAB
     Indication: PSORIASIS
     Route: 058
  6. METHOTREXATE. [Suspect]
     Active Substance: METHOTREXATE
     Indication: PRODUCT USED FOR UNKNOWN INDICATION
     Route: 065
  7. HUMIRA [Concomitant]
     Active Substance: ADALIMUMAB
     Dosage: SOLUTION SUBCUTANEOUS
     Route: 065
  8. SALICYLATE SODIUM/SALICYLIC ACID/SALICYLIC ACID TRIETHANOLAMINE [Concomitant]
     Active Substance: SODIUM SALICYLATE
     Route: 065

REACTIONS (7)
  - Palmoplantar keratoderma [Unknown]
  - Chronic obstructive pulmonary disease [Unknown]
  - Nasopharyngitis [Unknown]
  - Viral infection [Unknown]
  - Malaise [Unknown]
  - Scab [Unknown]
  - Lower respiratory tract infection [Unknown]
